FAERS Safety Report 9799611 (Version 1)
Quarter: 2014Q1

REPORT INFORMATION
  Report Type: Spontaneous
  Country: US (occurrence: US)
  Receive Date: 20140106
  Receipt Date: 20140106
  Transmission Date: 20141002
  Serious: No
  Sender: FDA-Public Use
  Company Number: US-GILEAD-2010-0031597

PATIENT
  Age: 37 Year
  Sex: Female
  Weight: 71.67 kg

DRUGS (15)
  1. LETAIRIS [Suspect]
     Indication: PULMONARY ARTERIAL HYPERTENSION
     Dates: start: 20090709
  2. ADCIRCA [Concomitant]
     Dates: start: 20091023
  3. TYVASO [Concomitant]
     Dates: start: 20100211
  4. COREG [Concomitant]
  5. LASIX [Concomitant]
  6. COUMADIN [Concomitant]
  7. ALTACE [Concomitant]
  8. MUCINEX [Concomitant]
  9. TRAMADOL [Concomitant]
  10. LEVOTHYROXINE [Concomitant]
  11. SPIRONOLACTONE [Concomitant]
  12. ORTHO LOW [Concomitant]
  13. POTASSIUM CHLORIDE [Concomitant]
  14. VITAMIN D [Concomitant]
  15. CALCIUM [Concomitant]

REACTIONS (1)
  - Sinusitis [Unknown]
